FAERS Safety Report 5601378-3 (Version None)
Quarter: 2008Q1

REPORT INFORMATION
  Report Type: 
  Country: None (occurrence: None)
  Receive Date: 20080110
  Receipt Date: 20070510
  Transmission Date: 20080703
  Serious: Yes (Death)
  Sender: FDA-Public Use
  Company Number: 20051219VANCO0175

PATIENT
  Sex: Male

DRUGS (2)
  1. VANCOMYCIN HCL [Suspect]
     Indication: STAPHYLOCOCCAL INFECTION
     Dosage: (1 GM, NOT SPECIFIED),ORAL
     Route: 048
  2. NETILMICIN SULFATE [Concomitant]

REACTIONS (1)
  - PNEUMONIA [None]
